FAERS Safety Report 4290938-0 (Version None)
Quarter: 2004Q1

REPORT INFORMATION
  Report Type: 
  Country: None (occurrence: None)
  Receive Date: 20040211
  Receipt Date: 20031015
  Transmission Date: 20041129
  Serious: No
  Sender: FDA-Public Use
  Company Number: US-GLAXOSMITHKLINE-A0430488A

PATIENT
  Sex: Male

DRUGS (2)
  1. PAROXETINE [Suspect]
     Indication: ANXIETY
     Route: 065
  2. PAXIL [Concomitant]
     Indication: ANXIETY
     Route: 065
     Dates: start: 20030801

REACTIONS (1)
  - ADVERSE EVENT [None]
